FAERS Safety Report 18543345 (Version 1)
Quarter: 2020Q4

REPORT INFORMATION
  Report Type: Spontaneous
  Country: US (occurrence: US)
  Receive Date: 20201125
  Receipt Date: 20201125
  Transmission Date: 20210114
  Serious: No
  Sender: FDA-Public Use
  Company Number: US-PERSON AND COVEY-2096287

PATIENT
  Sex: Female

DRUGS (1)
  1. DHS TAR [Suspect]
     Active Substance: COAL TAR
     Indication: DANDRUFF
     Route: 003

REACTIONS (1)
  - Pruritus [Unknown]
